FAERS Safety Report 23393925 (Version 6)
Quarter: 2025Q1

REPORT INFORMATION
  Report Type: Spontaneous
  Country: US (occurrence: US)
  Receive Date: 20240111
  Receipt Date: 20250115
  Transmission Date: 20250409
  Serious: No
  Sender: PFIZER
  Company Number: US-PFIZER INC-2019477961

PATIENT
  Age: 69 Year
  Sex: Female

DRUGS (1)
  1. PREMARIN [Suspect]
     Active Substance: ESTROGENS, CONJUGATED
     Indication: Atrophic vulvovaginitis
     Dosage: 1 G, 2X/WEEK  [0.5 APPLICATORFUL FULL, 1 GRAM VAGINALLY INSERT AT NIGHT TWICE A WEEK]
     Route: 067
     Dates: start: 2017

REACTIONS (3)
  - Respiratory tract infection [Unknown]
  - Sinusitis [Unknown]
  - Off label use [Unknown]
